FAERS Safety Report 12081162 (Version 1)
Quarter: 2016Q1

REPORT INFORMATION
  Report Type: Spontaneous
  Country: US (occurrence: US)
  Receive Date: 20160216
  Receipt Date: 20160216
  Transmission Date: 20160526
  Serious: No
  Sender: FDA-Public Use
  Company Number: US-NEPHRON PHARMACEUTICALS CORPORATION-1047904

PATIENT
  Age: 90 Year
  Sex: Female
  Weight: 75 kg

DRUGS (1)
  1. IPRATROPIUM BROMIDE AND ALBUTEROL SULFATE [Suspect]
     Active Substance: ALBUTEROL SULFATE\IPRATROPIUM BROMIDE
     Indication: PNEUMONIA
     Route: 055
     Dates: start: 20150504, end: 20150504

REACTIONS (4)
  - Cough [Not Recovered/Not Resolved]
  - Dyspnoea [None]
  - Increased upper airway secretion [None]
  - Wheezing [Not Recovered/Not Resolved]

NARRATIVE: CASE EVENT DATE: 20150504
